FAERS Safety Report 9613061 (Version 8)
Quarter: 2017Q3

REPORT INFORMATION
  Report Type: Spontaneous
  Country: CA (occurrence: CA)
  Receive Date: 20131010
  Receipt Date: 20170705
  Transmission Date: 20171128
  Serious: Yes (Hospitalization, Other)
  Sender: FDA-Public Use
  Company Number: CA-GLAXOSMITHKLINE-A1044194A

PATIENT
  Age: 53 Year
  Sex: Male
  Weight: 84 kg

DRUGS (10)
  1. BENLYSTA [Suspect]
     Active Substance: BELIMUMAB
     Indication: SYSTEMIC LUPUS ERYTHEMATOSUS
     Dosage: WEEKS 0, 2, 4 THEN EVERY 4 WEEKS
     Route: 042
     Dates: start: 20130313
  2. BENLYSTA [Suspect]
     Active Substance: BELIMUMAB
     Dosage: 900 MG, UNK
     Route: 042
  3. BENLYSTA [Suspect]
     Active Substance: BELIMUMAB
     Dosage: UNK
  4. BENLYSTA [Suspect]
     Active Substance: BELIMUMAB
     Dosage: 900 MG, UNK
  5. PREDNISONE. [Concomitant]
     Active Substance: PREDNISONE
     Indication: PRODUCT USED FOR UNKNOWN INDICATION
     Dosage: 10 TO 15 MG PER DAY
  6. TYLENOL [Concomitant]
     Active Substance: ACETAMINOPHEN
     Indication: PRODUCT USED FOR UNKNOWN INDICATION
     Dosage: 325 MG, UNK
  7. OXYNEO [Concomitant]
     Active Substance: OXYCODONE
     Indication: PRODUCT USED FOR UNKNOWN INDICATION
     Dosage: 40 MG, BID
  8. BENLYSTA [Suspect]
     Active Substance: BELIMUMAB
     Dosage: UNK
     Route: 042
     Dates: start: 20130313
  9. BENLYSTA [Suspect]
     Active Substance: BELIMUMAB
     Dosage: 900 MG, UNK
     Route: 042
  10. PLAQUENIL [Concomitant]
     Active Substance: HYDROXYCHLOROQUINE SULFATE
     Indication: PRODUCT USED FOR UNKNOWN INDICATION
     Dosage: 200 MG, 1D
     Route: 048

REACTIONS (21)
  - Shoulder operation [Unknown]
  - Ostectomy [Unknown]
  - Loss of personal independence in daily activities [Unknown]
  - Feeling abnormal [Unknown]
  - Fatigue [Unknown]
  - Joint swelling [Unknown]
  - Joint fluid drainage [Unknown]
  - Rotator cuff repair [Unknown]
  - Pain [Unknown]
  - Eating disorder [Unknown]
  - Drug dose omission [Unknown]
  - Arthritis [Unknown]
  - Drug ineffective [Unknown]
  - Asthenia [Unknown]
  - Weight decreased [Unknown]
  - Tendon rupture [Unknown]
  - Gastroenteritis viral [Unknown]
  - Exostosis [Unknown]
  - Myalgia [Unknown]
  - Arthralgia [Unknown]
  - Vomiting [Unknown]

NARRATIVE: CASE EVENT DATE: 20160213
